FAERS Safety Report 7913364-9 (Version None)
Quarter: 2011Q4

REPORT INFORMATION
  Report Type: 
  Country: None (occurrence: None)
  Receive Date: 20111114
  Receipt Date: 20111101
  Transmission Date: 20120403
  Serious: Yes (Hospitalization, Other)
  Sender: FDA-Public Use
  Company Number: US-ELI_LILLY_AND_COMPANY-US201108009080

PATIENT
  Sex: Female

DRUGS (12)
  1. DOCUSATE SODIUM [Concomitant]
     Dosage: 100 MG, OTHER
  2. ZYRTEC [Concomitant]
     Dosage: 10 MG, UNK
  3. GABAPENTIN [Concomitant]
     Dosage: 400 MG, QD
  4. FORTEO [Suspect]
     Indication: OSTEOPOROSIS
     Dosage: 20 UG, QD
     Dates: start: 20101101
  5. LEVETIRACETAM [Concomitant]
     Dosage: 500 MG, BID
  6. CALCIUM [Concomitant]
     Dosage: 1200 MG, UNK
  7. OXYCONTIN [Concomitant]
     Dosage: 20 MG, QD
  8. FLUOXETINE HCL [Concomitant]
     Dosage: 40 MG, UNK
  9. OXYBUTYNIN [Concomitant]
     Dosage: 10 MG, QD
  10. OXYCODONE AND ACETAMINOPHEN [Concomitant]
  11. CLONAZEPAM [Concomitant]
     Dosage: 0.5 MG, QD
  12. VITAMIN D [Concomitant]
     Dosage: 50000 IU, UNK

REACTIONS (12)
  - URINARY TRACT INFECTION [None]
  - SURGERY [None]
  - FEELING OF BODY TEMPERATURE CHANGE [None]
  - OEDEMA PERIPHERAL [None]
  - DELUSION [None]
  - NEPHROLITHIASIS [None]
  - DEVICE BREAKAGE [None]
  - TREMOR [None]
  - PROCEDURAL PAIN [None]
  - INFECTION [None]
  - INCOHERENT [None]
  - ASTHENIA [None]
